FAERS Safety Report 7359981-9 (Version None)
Quarter: 2011Q1

REPORT INFORMATION
  Report Type: 
  Country: None (occurrence: None)
  Receive Date: 20110317
  Receipt Date: 20110314
  Transmission Date: 20110831
  Serious: Yes (Other)
  Sender: FDA-Public Use
  Company Number: GB-MERCK-1102GBR00066

PATIENT
  Age: 63 Year
  Sex: Female

DRUGS (2)
  1. COZAAR [Suspect]
     Route: 048
     Dates: start: 20101213, end: 20110122
  2. LEVOTHYROXINE SODIUM [Suspect]
     Route: 065

REACTIONS (2)
  - BLOOD TEST ABNORMAL [None]
  - DRUG DISPENSING ERROR [None]
